FAERS Safety Report 21129694 (Version 2)
Quarter: 2022Q4

REPORT INFORMATION
  Report Type: Report from Study
  Country: US (occurrence: US)
  Receive Date: 20220726
  Receipt Date: 20221124
  Transmission Date: 20230112
  Serious: Yes (Other)
  Sender: FDA-Public Use
  Company Number: US-ABBVIE-22K-163-4479990-00

PATIENT
  Sex: Male

DRUGS (2)
  1. IMBRUVICA [Suspect]
     Active Substance: IBRUTINIB
     Indication: Product used for unknown indication
     Route: 048
  2. IMBRUVICA [Suspect]
     Active Substance: IBRUTINIB
     Indication: Product used for unknown indication
     Dosage: JUST RESTARTED THERAPY
     Route: 048
     Dates: start: 2022

REACTIONS (8)
  - Paralysis [Unknown]
  - Spinal operation [Unknown]
  - Road traffic accident [Unknown]
  - Neck surgery [Unknown]
  - Peripheral swelling [Unknown]
  - Skin laceration [Unknown]
  - Haemorrhage [Unknown]
  - Discharge [Unknown]

NARRATIVE: CASE EVENT DATE: 20220101
